FAERS Safety Report 15399248 (Version 1)
Quarter: 2018Q3

REPORT INFORMATION
  Report Type: Report from Study
  Country: None (occurrence: US)
  Receive Date: 20180918
  Receipt Date: 20180918
  Transmission Date: 20181010
  Serious: Yes (Death, Hospitalization)
  Sender: FDA-Public Use
  Company Number: US-BAUSCH-BL-2018-025420

PATIENT
  Age: 59 Year
  Sex: Female

DRUGS (1)
  1. DIASTAT [Suspect]
     Active Substance: DIAZEPAM
     Indication: SEIZURE
     Dosage: STARTED APPROXIMATELY 8 YEARS AGO; ?AS NEEDED
     Route: 054

REACTIONS (2)
  - Hepatitis C [Fatal]
  - Vomiting [Unknown]

NARRATIVE: CASE EVENT DATE: 201806
